FAERS Safety Report 12967505 (Version 2)
Quarter: 2016Q4

REPORT INFORMATION
  Report Type: Report from Study
  Country: US (occurrence: US)
  Receive Date: 20161123
  Receipt Date: 20161213
  Transmission Date: 20170207
  Serious: Yes (Hospitalization, Other)
  Sender: FDA-Public Use
  Company Number: US-GILEAD-2016-0237746

PATIENT
  Age: 54 Year
  Sex: Female
  Weight: 167 kg

DRUGS (15)
  1. AMOXICILLIN AND CLAVULANATE POTASSIUM [Concomitant]
     Active Substance: AMOXICILLIN\CLAVULANATE POTASSIUM
  2. AMBRISENTAN [Suspect]
     Active Substance: AMBRISENTAN
     Indication: PULMONARY HYPERTENSION
     Dosage: 10 MG, UNK
     Route: 048
     Dates: start: 20161020, end: 20161107
  3. ALENDRONATE [Concomitant]
     Active Substance: ALENDRONATE SODIUM
  4. IPRATROPIUM/SALBUTAMOL SANDOZ [Concomitant]
  5. NAPROSYN [Concomitant]
     Active Substance: NAPROXEN
  6. TYLENOL WITH CODEINE [Concomitant]
     Active Substance: ACETAMINOPHEN\CODEINE PHOSPHATE
  7. AMBRISENTAN [Suspect]
     Active Substance: AMBRISENTAN
     Dosage: 5 MG, UNK
     Route: 048
  8. PHENERGAN EXPECTORANT WITH CODEINE [Concomitant]
  9. FLEXERIL [Concomitant]
     Active Substance: CYCLOBENZAPRINE HYDROCHLORIDE
  10. PREDNISONE. [Concomitant]
     Active Substance: PREDNISONE
  11. CYCLOBENZAPRINE [Concomitant]
     Active Substance: CYCLOBENZAPRINE
  12. TADALAFIL [Concomitant]
     Active Substance: TADALAFIL
     Indication: PULMONARY HYPERTENSION
  13. ADVAIR HFA [Concomitant]
     Active Substance: FLUTICASONE PROPIONATE\SALMETEROL XINAFOATE
  14. ATRIPLA [Concomitant]
     Active Substance: EFAVIRENZ\EMTRICITABINE\TENOFOVIR DISOPROXIL FUMARATE
  15. PROAIR HFA [Concomitant]
     Active Substance: ALBUTEROL SULFATE

REACTIONS (16)
  - Memory impairment [Unknown]
  - Nervousness [Unknown]
  - Respiratory failure [Not Recovered/Not Resolved]
  - Oedema [Recovered/Resolved]
  - Confusional state [Unknown]
  - Oxygen saturation decreased [Unknown]
  - Emotional disorder [Unknown]
  - Depression [Unknown]
  - Swelling [Recovered/Resolved]
  - Abdominal distension [Unknown]
  - Anxiety [Unknown]
  - Headache [Unknown]
  - Intentional product use issue [Unknown]
  - Dry mouth [Unknown]
  - Amnesia [Unknown]
  - Hyperacusis [Unknown]

NARRATIVE: CASE EVENT DATE: 20161031
